FAERS Safety Report 17223374 (Version 2)
Quarter: 2020Q1

REPORT INFORMATION
  Report Type: Report from Study
  Country: US (occurrence: US)
  Receive Date: 20200102
  Receipt Date: 20200305
  Transmission Date: 20200409
  Serious: Yes (Other)
  Sender: FDA-Public Use
  Company Number: US-ROCHE-2507740

PATIENT
  Sex: Female
  Weight: 81.72 kg

DRUGS (7)
  1. DILTIAZEM CD [Concomitant]
     Active Substance: DILTIAZEM
     Route: 065
     Dates: start: 2015
  2. LOSARTAN. [Concomitant]
     Active Substance: LOSARTAN
     Route: 065
     Dates: start: 2005
  3. AMLODIPINE [Concomitant]
     Active Substance: AMLODIPINE BESYLATE
     Route: 065
     Dates: start: 2015
  4. DULOXETINE. [Concomitant]
     Active Substance: DULOXETINE
     Route: 065
     Dates: start: 2000
  5. ASPIRIN [ACETYLSALICYLIC ACID] [Concomitant]
     Active Substance: ASPIRIN
     Route: 065
     Dates: start: 2007
  6. ACTEMRA [Suspect]
     Active Substance: TOCILIZUMAB
     Indication: SJOGREN^S SYNDROME
  7. ACTEMRA [Suspect]
     Active Substance: TOCILIZUMAB
     Indication: RHEUMATOID ARTHRITIS
     Dosage: ACTPEN AUTOINJECTOR, INJECT 162MG SUBCUTANEOUSLY EVERY WEEK
     Route: 058

REACTIONS (6)
  - Blood cholesterol increased [Not Recovered/Not Resolved]
  - Oxygen saturation decreased [Recovered/Resolved]
  - Inappropriate schedule of product administration [Unknown]
  - Dyspnoea [Recovered/Resolved]
  - Pulmonary oedema [Recovering/Resolving]
  - Joint swelling [Recovered/Resolved]

NARRATIVE: CASE EVENT DATE: 2019
